FAERS Safety Report 25889412 (Version 1)
Quarter: 2025Q4

REPORT INFORMATION
  Report Type: Spontaneous
  Country: EU (occurrence: EU)
  Receive Date: 20251007
  Receipt Date: 20251007
  Transmission Date: 20260118
  Serious: Yes (Other)
  Sender: STRIDES
  Company Number: EU-STRIDES ARCOLAB LIMITED-2025SP012454

PATIENT
  Age: 69 Year
  Sex: Male

DRUGS (2)
  1. MYCOPHENOLATE MOFETIL [Suspect]
     Active Substance: MYCOPHENOLATE MOFETIL
     Indication: Pyoderma gangrenosum
     Dosage: UNK
     Route: 065
  2. DAPSONE [Suspect]
     Active Substance: DAPSONE
     Indication: Pyoderma gangrenosum
     Dosage: UNK
     Route: 065

REACTIONS (2)
  - Disease recurrence [Recovered/Resolved]
  - Off label use [Unknown]
